FAERS Safety Report 9726075 (Version 1)
Quarter: 2013Q4

REPORT INFORMATION
  Report Type: Spontaneous
  Country: DE (occurrence: DE)
  Receive Date: 20131203
  Receipt Date: 20131203
  Transmission Date: 20140711
  Serious: Yes (Other)
  Sender: FDA-Public Use
  Company Number: DE-INCYTE CORPORATION-2013IN002818

PATIENT
  Sex: Female

DRUGS (3)
  1. JAKAVI [Suspect]
     Indication: MYELOFIBROSIS
     Dosage: 20 MG, BID
     Route: 048
  2. CLIMOPAX [Concomitant]
  3. LIPIDIL [Concomitant]

REACTIONS (2)
  - Leukopenia [Unknown]
  - Thrombocytopenia [Unknown]
